APPROVED DRUG PRODUCT: SULFAMETHOXAZOLE
Active Ingredient: SULFAMETHOXAZOLE
Strength: 1GM
Dosage Form/Route: TABLET;ORAL
Application: A086000 | Product #001
Applicant: WATSON LABORATORIES INC
Approved: Approved Prior to Jan 1, 1982 | RLD: No | RS: No | Type: DISCN